FAERS Safety Report 10745755 (Version 1)
Quarter: 2015Q1

REPORT INFORMATION
  Report Type: Spontaneous
  Country: CH (occurrence: CH)
  Receive Date: 20150128
  Receipt Date: 20150128
  Transmission Date: 20150721
  Serious: Yes (Other)
  Sender: FDA-Public Use
  Company Number: CH-ASTRAZENECA-2015SE06015

PATIENT
  Age: 10449 Day
  Sex: Male

DRUGS (3)
  1. BRILIQUE [Suspect]
     Active Substance: TICAGRELOR
     Indication: DRUG LEVEL
     Route: 048
     Dates: start: 20140929
  2. FEXOFENADINE [Concomitant]
     Active Substance: FEXOFENADINE\FEXOFENADINE HYDROCHLORIDE
     Indication: DRUG LEVEL
     Route: 048
     Dates: start: 20140929
  3. MIDAZOLAM SINTETICA [Concomitant]
     Indication: DRUG LEVEL
     Route: 048
     Dates: start: 20140929

REACTIONS (1)
  - Priapism [Recovered/Resolved]

NARRATIVE: CASE EVENT DATE: 20141029
